FAERS Safety Report 12702598 (Version 1)
Quarter: 2016Q3

REPORT INFORMATION
  Report Type: Spontaneous
  Country: US (occurrence: US)
  Receive Date: 20160831
  Receipt Date: 20160831
  Transmission Date: 20161109
  Serious: No
  Sender: FDA-Public Use
  Company Number: US-JNJFOC-20160602783

PATIENT
  Sex: Female

DRUGS (3)
  1. STELARA [Suspect]
     Active Substance: USTEKINUMAB
     Indication: PSORIASIS
     Route: 058
     Dates: start: 20151111
  2. ECHINACEA [Concomitant]
     Active Substance: ECHINACEA, UNSPECIFIED
     Route: 065
  3. ASCORBIC ACID. [Concomitant]
     Active Substance: ASCORBIC ACID
     Route: 065

REACTIONS (4)
  - Gastroenteritis viral [Unknown]
  - Drug ineffective [Unknown]
  - Psoriasis [Unknown]
  - Bronchitis [Unknown]
